APPROVED DRUG PRODUCT: TRETINOIN
Active Ingredient: TRETINOIN
Strength: 0.075%
Dosage Form/Route: CREAM;TOPICAL
Application: A202209 | Product #001
Applicant: ALLERGAN SALES LLC
Approved: Oct 11, 2012 | RLD: No | RS: No | Type: DISCN